FAERS Safety Report 25254670 (Version 1)
Quarter: 2025Q2

REPORT INFORMATION
  Report Type: Spontaneous
  Country: US (occurrence: None)
  Receive Date: 20250429
  Receipt Date: 20250429
  Transmission Date: 20250717
  Serious: Yes (Hospitalization)
  Sender: FDA-CTU
  Company Number: None

PATIENT
  Age: 8 Year
  Sex: Male

DRUGS (1)
  1. PULMOZYME [Suspect]
     Active Substance: DORNASE ALFA
     Indication: Cystic fibrosis
     Dosage: FREQUENCY : DAILY;?
     Route: 048
     Dates: start: 202305

REACTIONS (5)
  - Pneumonia aspiration [None]
  - Upper respiratory tract infection [None]
  - Rhinorrhoea [None]
  - Productive cough [None]
  - Respiratory tract congestion [None]

NARRATIVE: CASE EVENT DATE: 20250308
